FAERS Safety Report 4508997-6 (Version None)
Quarter: 2004Q4

REPORT INFORMATION
  Report Type: 
  Country: None (occurrence: None)
  Receive Date: 20041122
  Receipt Date: 20041122
  Transmission Date: 20050328
  Serious: Yes (Hospitalization)
  Sender: FDA-Public Use
  Company Number: None

PATIENT
  Age: 61 Year
  Sex: Female

DRUGS (9)
  1. HYDROCHLOROTHIAZIDE [Suspect]
     Indication: HYPERTENSION
     Dosage: 25 MG DAILY ORAL
     Route: 048
     Dates: start: 20040714, end: 20040717
  2. EXCITALOPRAM [Suspect]
     Indication: DEPRESSION
     Dosage: 10 MG DAILY ORAL
     Route: 048
     Dates: start: 20040714, end: 20040717
  3. CLOPIDIGREL-PLAVIX [Concomitant]
  4. LOTENSIN [Concomitant]
  5. ZOCOR [Concomitant]
  6. LOPRESSOR [Concomitant]
  7. PREDNISONE [Concomitant]
  8. MELOXICAN-MOBIC [Concomitant]
  9. HUMIRA [Concomitant]

REACTIONS (2)
  - ASTHENIA [None]
  - BLOOD SODIUM INCREASED [None]
